FAERS Safety Report 7083491-X (Version None)
Quarter: 2010Q4

REPORT INFORMATION
  Report Type: 
  Country: None (occurrence: None)
  Receive Date: 20101104
  Receipt Date: 20100730
  Transmission Date: 20110411
  Serious: Yes (Other)
  Sender: FDA-Public Use
  Company Number: US-BAYER-201013256NA

PATIENT
  Age: 48 Year
  Sex: Female
  Weight: 68 kg

DRUGS (3)
  1. YAZ [Suspect]
     Indication: PRODUCT USED FOR UNKNOWN INDICATION
     Route: 048
     Dates: start: 20080512
  2. SYNTHROID [Concomitant]
  3. MOTRIN [Concomitant]

REACTIONS (9)
  - ABDOMINAL DISTENSION [None]
  - BACK PAIN [None]
  - BILIARY DYSKINESIA [None]
  - CHOLECYSTITIS CHRONIC [None]
  - CHOLELITHIASIS [None]
  - FOOD INTOLERANCE [None]
  - GASTROINTESTINAL MOTILITY DISORDER [None]
  - MUSCULOSKELETAL CHEST PAIN [None]
  - NAUSEA [None]
